FAERS Safety Report 12662427 (Version 2)
Quarter: 2017Q3

REPORT INFORMATION
  Report Type: Spontaneous
  Country: TW (occurrence: TW)
  Receive Date: 20160817
  Receipt Date: 20170724
  Transmission Date: 20171127
  Serious: Yes (Other)
  Sender: FDA-Public Use
  Company Number: TW-BAUSCH-BL-2016-019883

PATIENT
  Age: 33 Year
  Sex: Female

DRUGS (3)
  1. ACICLOVIR [Suspect]
     Active Substance: ACYCLOVIR
     Indication: VARICELLA
     Route: 042
     Dates: start: 20160823, end: 20160826
  2. RITODRINE [Concomitant]
     Active Substance: RITODRINE
     Indication: PREMATURE LABOUR
     Dates: start: 201608
  3. NIFEDIPINE. [Concomitant]
     Active Substance: NIFEDIPINE
     Indication: PREMATURE LABOUR
     Dates: start: 201608

REACTIONS (4)
  - Acute kidney injury [Recovering/Resolving]
  - Nephropathy [Recovering/Resolving]
  - Nephropathy toxic [Recovering/Resolving]
  - Exposure during pregnancy [Unknown]

NARRATIVE: CASE EVENT DATE: 20160823
